FAERS Safety Report 4875862-4 (Version None)
Quarter: 2006Q1

REPORT INFORMATION
  Report Type: 
  Country: None (occurrence: None)
  Receive Date: 20060109
  Receipt Date: 20060103
  Transmission Date: 20060701
  Serious: Yes (Life-Threatening, Hospitalization, Disabling)
  Sender: FDA-Public Use
  Company Number: US-MERCK-0601USA00168

PATIENT
  Age: 60 Year
  Sex: Male

DRUGS (8)
  1. SINGULAIR [Suspect]
     Indication: RHINITIS ALLERGIC
     Route: 048
     Dates: start: 20051215, end: 20051228
  2. SINGULAIR [Suspect]
     Route: 048
     Dates: start: 20050101, end: 20050101
  3. QUESTRAN [Concomitant]
     Route: 065
  4. CALTRATE [Concomitant]
     Route: 065
  5. FOSAMAX [Concomitant]
     Route: 048
  6. CENTRUM SILVER [Concomitant]
     Route: 065
  7. MEPHYTON [Concomitant]
     Route: 048
  8. CLONAZEPAM [Concomitant]
     Route: 065

REACTIONS (3)
  - BLOOD SODIUM DECREASED [None]
  - COLITIS ISCHAEMIC [None]
  - HAEMOGLOBIN DECREASED [None]
